FAERS Safety Report 7415934-3 (Version None)
Quarter: 2011Q2

REPORT INFORMATION
  Report Type: 
  Country: None (occurrence: None)
  Receive Date: 20110414
  Receipt Date: 20110406
  Transmission Date: 20111010
  Serious: Yes (Other)
  Sender: FDA-Public Use
  Company Number: PHHY2011GB21166

PATIENT
  Sex: Female
  Weight: 60 kg

DRUGS (9)
  1. ACETAMINOPHEN AND CODEINE PHOSPHATE [Concomitant]
     Indication: HEADACHE
     Route: 048
     Dates: start: 20100506
  2. LORATADINE [Concomitant]
     Indication: HYPERSENSITIVITY
     Dosage: 10 MG, UNK
     Route: 048
     Dates: start: 20090603
  3. SUMATRIPTAN [Concomitant]
     Indication: MIGRAINE
     Route: 045
     Dates: start: 20050914
  4. GABAPENTIN [Suspect]
     Dosage: 600 MG, TID
     Route: 048
  5. GABAPENTIN [Suspect]
     Dosage: 900 MG, TID
     Route: 048
     Dates: end: 20110201
  6. DICLOFENAC [Concomitant]
     Indication: MIGRAINE
     Dosage: 50 MG, UNK
     Dates: start: 20050914
  7. PHOSPHATE ENEMA [Concomitant]
     Indication: CONSTIPATION
     Route: 054
     Dates: start: 20091102
  8. AMITRIPTYLINE [Concomitant]
     Indication: HEADACHE
     Dosage: 100 MG, UNK
     Route: 048
     Dates: start: 20090306
  9. GABAPENTIN [Suspect]
     Indication: HEADACHE
     Dosage: 300 MG, TID
     Route: 048
     Dates: start: 20110107

REACTIONS (2)
  - SLEEP TALKING [None]
  - SOMNAMBULISM [None]
